FAERS Safety Report 9456965 (Version 1)
Quarter: 2013Q3

REPORT INFORMATION
  Report Type: Spontaneous
  Country: US (occurrence: US)
  Receive Date: 20130814
  Receipt Date: 20130814
  Transmission Date: 20140515
  Serious: Yes (Other)
  Sender: FDA-Public Use
  Company Number: US-JNJFOC-20130801069

PATIENT
  Age: 55 Year
  Sex: Male
  Weight: 95.26 kg

DRUGS (6)
  1. BENADRYL [Suspect]
     Indication: RASH
     Dosage: A PEA SIZE AMOUNT ON EACH HAND TWICE
     Route: 048
  2. BENADRYL [Suspect]
     Indication: PRURITUS
     Dosage: A PEA SIZE AMOUNT ON EACH HAND TWICE
     Route: 061
     Dates: start: 20130731, end: 20130731
  3. FLAXSEED [Concomitant]
     Indication: GENERAL PHYSICAL CONDITION
     Dosage: SINCE 6 YEARS
     Route: 065
  4. LOSARTAN/HYDROCHLOROTHIAZIDE [Concomitant]
     Indication: HYPERTENSION
     Dosage: SINCE 6 YEARS
     Route: 065
  5. BUPROPION [Concomitant]
     Indication: ATTENTION DEFICIT/HYPERACTIVITY DISORDER
     Dosage: SINCE 6 YEARS
     Route: 065
  6. BABY ASPIRIN [Concomitant]
     Indication: PROPHYLAXIS
     Dosage: SINCE 6 YEARS
     Route: 065

REACTIONS (7)
  - Hypersensitivity [Not Recovered/Not Resolved]
  - Blister [Not Recovered/Not Resolved]
  - Rash [Not Recovered/Not Resolved]
  - Local swelling [Not Recovered/Not Resolved]
  - Off label use [Unknown]
  - Therapeutic response unexpected [Unknown]
  - Pruritus [Not Recovered/Not Resolved]
